FAERS Safety Report 6696154-7 (Version None)
Quarter: 2010Q2

REPORT INFORMATION
  Report Type: 
  Country: None (occurrence: None)
  Receive Date: 20100426
  Receipt Date: 20100421
  Transmission Date: 20101027
  Serious: Yes (Hospitalization)
  Sender: FDA-Public Use
  Company Number: DE-BRISTOL-MYERS SQUIBB COMPANY-15072515

PATIENT
  Age: 67 Year
  Sex: Female

DRUGS (2)
  1. HYDROXYUREA [Suspect]
  2. FENTANYL-25 [Suspect]

REACTIONS (3)
  - ATRIAL FLUTTER [None]
  - COMA [None]
  - RESPIRATORY DEPRESSION [None]
